FAERS Safety Report 5509447-3 (Version None)
Quarter: 2007Q4

REPORT INFORMATION
  Report Type: 
  Country: None (occurrence: None)
  Receive Date: 20071106
  Receipt Date: 20071022
  Transmission Date: 20080405
  Serious: Yes (Life-Threatening, Hospitalization, Other)
  Sender: FDA-Public Use
  Company Number: 020237

PATIENT
  Age: 14 Year
  Sex: Male
  Weight: 75 kg

DRUGS (1)
  1. IBUPROFEN [Suspect]
     Indication: INTENTIONAL OVERDOSE
     Dosage: APPROX. 50 G, ONCE, ORAL
     Route: 048

REACTIONS (26)
  - APNOEA [None]
  - AREFLEXIA [None]
  - CARDIAC DISORDER [None]
  - CARDIAC ENZYMES INCREASED [None]
  - CIRCULATORY COLLAPSE [None]
  - EXTRASYSTOLES [None]
  - GASTRIC HAEMORRHAGE [None]
  - GLASGOW COMA SCALE ABNORMAL [None]
  - HEPATIC ENZYME INCREASED [None]
  - HYPOTENSION [None]
  - INTENTIONAL OVERDOSE [None]
  - METABOLIC ACIDOSIS [None]
  - NO THERAPEUTIC RESPONSE [None]
  - PLATELET FUNCTION TEST ABNORMAL [None]
  - POOR PERIPHERAL CIRCULATION [None]
  - PULMONARY HAEMORRHAGE [None]
  - PULSE PRESSURE DECREASED [None]
  - PUPILLARY REFLEX IMPAIRED [None]
  - RENAL FAILURE [None]
  - RENAL FUNCTION TEST ABNORMAL [None]
  - RESPIRATORY ACIDOSIS [None]
  - RESPIRATORY RATE INCREASED [None]
  - SINUS TACHYCARDIA [None]
  - UNRESPONSIVE TO STIMULI [None]
  - URINE SODIUM DECREASED [None]
  - VOMITING [None]
